FAERS Safety Report 20092930 (Version 2)
Quarter: 2021Q4

REPORT INFORMATION
  Report Type: Report from Study
  Country: BR (occurrence: BR)
  Receive Date: 20211120
  Receipt Date: 20211124
  Transmission Date: 20220303
  Serious: Yes (Other)
  Sender: FDA-Public Use
  Company Number: BR-NOVARTISPH-NVSC2021BR262292

PATIENT
  Age: 41 Year
  Sex: Female

DRUGS (4)
  1. COSENTYX [Suspect]
     Active Substance: SECUKINUMAB
     Indication: Psoriatic arthropathy
     Dosage: UNK UNK, QD (DAILY ATTACK DOSES FOR CONSECUTIVE 7 DAYS)
     Route: 065
     Dates: start: 20200421
  2. COSENTYX [Suspect]
     Active Substance: SECUKINUMAB
     Dosage: 150 MG, Q2W (EVERY 14 DAYS)
     Route: 065
     Dates: start: 2020
  3. COSENTYX [Suspect]
     Active Substance: SECUKINUMAB
     Dosage: UNK
     Route: 065
     Dates: start: 20211105
  4. COSENTYX [Suspect]
     Active Substance: SECUKINUMAB
     Dosage: 300 ML
     Route: 065

REACTIONS (9)
  - Immunodeficiency [Unknown]
  - Lichen planus [Recovering/Resolving]
  - Aphthous ulcer [Not Recovered/Not Resolved]
  - Hypersensitivity [Unknown]
  - Vitamin D decreased [Unknown]
  - Abnormal behaviour [Unknown]
  - Memory impairment [Unknown]
  - Inappropriate schedule of product administration [Not Recovered/Not Resolved]
  - Incorrect dose administered [Recovered/Resolved]

NARRATIVE: CASE EVENT DATE: 20200401
